FAERS Safety Report 10243074 (Version 1)
Quarter: 2014Q2

REPORT INFORMATION
  Report Type: Spontaneous
  Country: NO (occurrence: None)
  Receive Date: 20140613
  Receipt Date: 20140613
  Transmission Date: 20141212
  Serious: Yes (Other)
  Sender: FDA-Public Use
  Company Number: FK201402283

PATIENT
  Age: 24 Year
  Sex: Female

DRUGS (11)
  1. CYTARABINE (MANUFACTURER UNKNOWN) (CYTARABINE) (CYTARABINE) [Suspect]
     Indication: PRECURSOR B-LYMPHOBLASTIC LYMPHOMA
     Route: 037
  2. VINCRISTINE SULFATE (VINCRISTINE SULFATE) [Suspect]
     Indication: PRECURSOR B-LYMPHOBLASTIC LYMPHOMA
     Dosage: NOT OTHERWISE SPECIFIED
     Route: 042
  3. DOXORUBICIN (DOXORUBICIN) (DOXORUBICIN) [Suspect]
     Indication: PRECURSOR B-LYMPHOBLASTIC LYMPHOMA
     Dosage: NOT OTHERWISE SPECIFIED
     Route: 042
  4. PREDNISONE (PREDNISONE) (PREDNISONE) [Suspect]
     Indication: PRECURSOR B-LYMPHOBLASTIC LYMPHOMA
     Route: 048
  5. L-ASPARAGINASE [Suspect]
     Indication: PRECURSOR B-LYMPHOBLASTIC LYMPHOMA
     Dosage: NOT OTHEWISE SPECIFIED
     Route: 042
  6. METHOTREXATE [Suspect]
     Indication: PRECURSOR B-LYMPHOBLASTIC LYMPHOMA
     Dosage: NOT OTHERWISE SPECIFIED
     Route: 042
  7. MERCAPTOPURINE [Suspect]
     Indication: PRECURSOR B-LYMPHOBLASTIC LYMPHOMA
     Route: 048
  8. DAUNORUBICIN [Suspect]
     Indication: PRECURSOR B-LYMPHOBLASTIC LYMPHOMA
     Dosage: NOT OTHERWISE SPECIFIED
     Route: 042
  9. THIOGUANINE [Suspect]
     Indication: PRECURSOR B-LYMPHOBLASTIC LYMPHOMA
     Dosage: NOT OTHERWISE SPECIFIED
     Route: 042
  10. G-CSF [Suspect]
     Indication: PERIPHERAL BLOOD STEM CELL APHERESIS
  11. CYCLOPHOSPHAMIDE (CYCLOPHOSPHAMIDE) (CYCLOPHOSPHAMIDE) [Suspect]
     Indication: PRECURSOR B-LYMPHOBLASTIC LYMPHOMA
     Dosage: NOT OTHERWISE SPECIFIED
     Route: 042

REACTIONS (2)
  - Febrile neutropenia [None]
  - Haematotoxicity [None]
